FAERS Safety Report 9799112 (Version 3)
Quarter: 2015Q3

REPORT INFORMATION
  Report Type: Spontaneous
  Country: US (occurrence: US)
  Receive Date: 20140106
  Receipt Date: 20150806
  Transmission Date: 20151125
  Serious: No
  Sender: FDA-Public Use
  Company Number: US-GILEAD-2010-0032390

PATIENT
  Age: 65 Year
  Sex: Female

DRUGS (24)
  1. COLCHICINE. [Concomitant]
     Active Substance: COLCHICINE
  2. CELEBREX [Concomitant]
     Active Substance: CELECOXIB
  3. LEXAPRO [Concomitant]
     Active Substance: ESCITALOPRAM OXALATE
  4. TRAZODONE [Concomitant]
     Active Substance: TRAZODONE HYDROCHLORIDE
  5. PHENERGAN [Concomitant]
     Active Substance: PROMETHAZINE HYDROCHLORIDE
  6. RITALIN [Concomitant]
     Active Substance: METHYLPHENIDATE HYDROCHLORIDE
  7. FE-TINIC [Concomitant]
     Active Substance: VITAMINS
  8. IPRATROPIUM [Concomitant]
     Active Substance: IPRATROPIUM
  9. NEURONTIN [Concomitant]
     Active Substance: GABAPENTIN
  10. SEROQUEL [Concomitant]
     Active Substance: QUETIAPINE FUMARATE
  11. PROTONIX [Concomitant]
     Active Substance: PANTOPRAZOLE SODIUM
  12. COREG [Concomitant]
     Active Substance: CARVEDILOL
  13. REVATIO [Concomitant]
     Active Substance: SILDENAFIL CITRATE
  14. FLONASE [Concomitant]
     Active Substance: FLUTICASONE PROPIONATE
  15. FROVA [Concomitant]
     Active Substance: FROVATRIPTAN SUCCINATE
  16. LETAIRIS [Suspect]
     Active Substance: AMBRISENTAN
     Indication: PULMONARY ARTERIAL HYPERTENSION
     Route: 048
     Dates: start: 20091008
  17. SKELAXIN [Concomitant]
     Active Substance: METAXALONE
  18. COGENTIN [Concomitant]
     Active Substance: BENZTROPINE MESYLATE
  19. LORTAB [Concomitant]
     Active Substance: ACETAMINOPHEN\HYDROCODONE BITARTRATE
  20. TOPAMAX [Concomitant]
     Active Substance: TOPIRAMATE
  21. LISINOPRIL. [Concomitant]
     Active Substance: LISINOPRIL
  22. LASIX [Concomitant]
     Active Substance: FUROSEMIDE
  23. PREDNISONE. [Concomitant]
     Active Substance: PREDNISONE
  24. BUSPIRONE [Concomitant]
     Active Substance: BUSPIRONE HYDROCHLORIDE

REACTIONS (1)
  - Dyspnoea [Unknown]
